FAERS Safety Report 26123523 (Version 1)
Quarter: 2025Q4

REPORT INFORMATION
  Report Type: Spontaneous
  Country: GB (occurrence: GB)
  Receive Date: 20251204
  Receipt Date: 20251204
  Transmission Date: 20260117
  Serious: Yes (Other)
  Sender: TEVA
  Company Number: None

PATIENT
  Age: 44 Year
  Sex: Male
  Weight: 71 kg

DRUGS (1)
  1. LANSOPRAZOLE [Suspect]
     Active Substance: LANSOPRAZOLE
     Indication: Gastrooesophageal reflux disease
     Dosage: AT 6AM
     Route: 065
     Dates: start: 20251001, end: 20251108

REACTIONS (3)
  - Generalised anxiety disorder [Recovered/Resolved]
  - Nightmare [Recovered/Resolved]
  - Feeling abnormal [Unknown]

NARRATIVE: CASE EVENT DATE: 20251001
